FAERS Safety Report 14648710 (Version 1)
Quarter: 2018Q1

REPORT INFORMATION
  Report Type: Spontaneous
  Country: US (occurrence: US)
  Receive Date: 20180316
  Receipt Date: 20180316
  Transmission Date: 20180509
  Serious: Yes (Other)
  Sender: FDA-Public Use
  Company Number: US-LPDUSPRD-20180306

PATIENT
  Age: 8 Year
  Sex: Female

DRUGS (1)
  1. PAMIDRONATE DISODIUM INJECTION (0745-01) [Suspect]
     Active Substance: PAMIDRONATE DISODIUM
     Dosage: UNKNOWN
     Route: 065

REACTIONS (2)
  - Femur fracture [Unknown]
  - Multiple fractures [Unknown]
